FAERS Safety Report 7835168-8 (Version None)
Quarter: 2011Q4

REPORT INFORMATION
  Report Type: 
  Country: None (occurrence: None)
  Receive Date: 20111024
  Receipt Date: 20111012
  Transmission Date: 20120403
  Serious: Yes (Other)
  Sender: FDA-Public Use
  Company Number: JP-BRISTOL-MYERS SQUIBB COMPANY-16166191

PATIENT
  Age: 30 Year
  Sex: Female

DRUGS (8)
  1. EPZICOM [Concomitant]
     Indication: HIV INFECTION
  2. ZERIT [Suspect]
     Indication: HIV INFECTION
  3. RETROVIR [Suspect]
     Indication: HIV INFECTION
  4. VIRAMUNE [Suspect]
     Indication: HIV INFECTION
  5. VIREAD [Concomitant]
     Indication: HIV INFECTION
  6. ISENTRESS [Concomitant]
     Indication: HIV INFECTION
  7. VIDEX [Suspect]
     Indication: HIV INFECTION
     Route: 048
  8. EPIVIR [Suspect]
     Indication: HIV INFECTION

REACTIONS (2)
  - PREGNANCY [None]
  - PORTAL HYPERTENSION [None]
